FAERS Safety Report 19107749 (Version 1)
Quarter: 2021Q2

REPORT INFORMATION
  Report Type: Spontaneous
  Country: US (occurrence: US)
  Receive Date: 20210408
  Receipt Date: 20210408
  Transmission Date: 20210717
  Serious: Yes (Death, Hospitalization)
  Sender: FDA-Public Use
  Company Number: None

PATIENT
  Age: 80 Year
  Sex: Male
  Weight: 71.8 kg

DRUGS (3)
  1. LEUPROLIDE ACETATE. [Suspect]
     Active Substance: LEUPROLIDE ACETATE
     Dates: end: 20200917
  2. ABIRATERONE ACETATE. [Suspect]
     Active Substance: ABIRATERONE ACETATE
     Dates: end: 20210330
  3. PREDNISONE. [Suspect]
     Active Substance: PREDNISONE
     Dates: end: 20210330

REACTIONS (8)
  - Bradycardia [None]
  - Pleural effusion [None]
  - Dyspnoea [None]
  - Blood pressure decreased [None]
  - Aortic valve stenosis [None]
  - Pericardial effusion [None]
  - Haemodialysis [None]
  - Tricuspid valve incompetence [None]

NARRATIVE: CASE EVENT DATE: 20210327
